FAERS Safety Report 8397110-3 (Version None)
Quarter: 2012Q2

REPORT INFORMATION
  Report Type: 
  Country: None (occurrence: None)
  Receive Date: 20120530
  Receipt Date: 20120521
  Transmission Date: 20120825
  Serious: Yes (Other)
  Sender: FDA-Public Use
  Company Number: US-ABBOTT-12P-163-0937345-00

PATIENT
  Sex: Male
  Weight: 82.628 kg

DRUGS (4)
  1. HUMIRA [Suspect]
     Indication: RHEUMATOID ARTHRITIS
     Dates: start: 20100101, end: 20111101
  2. HUMIRA [Suspect]
     Dates: start: 20120301
  3. PRIMATENE MIST [Suspect]
     Indication: ASTHMA
     Route: 055
  4. UNKNOWN ALLERGY MEDICATION [Concomitant]
     Indication: HYPERSENSITIVITY

REACTIONS (6)
  - ASTHMA [None]
  - LOWER RESPIRATORY TRACT INFECTION [None]
  - EXERCISE ELECTROCARDIOGRAM ABNORMAL [None]
  - MYOCARDIAL INFARCTION [None]
  - WHEEZING [None]
  - CHEST DISCOMFORT [None]
